FAERS Safety Report 8310538-2 (Version None)
Quarter: 2012Q2

REPORT INFORMATION
  Report Type: 
  Country: None (occurrence: None)
  Receive Date: 20120425
  Receipt Date: 20120416
  Transmission Date: 20120825
  Serious: Yes (Other)
  Sender: FDA-Public Use
  Company Number: US-JNJFOC-20120113033

PATIENT
  Sex: Female
  Weight: 95.26 kg

DRUGS (13)
  1. TOPAMAX [Suspect]
     Indication: EPILEPSY
     Route: 048
  2. LAMICTAL [Suspect]
     Indication: CONVULSION
     Route: 048
  3. MISOPROSTOL [Suspect]
     Indication: PRODUCT USED FOR UNKNOWN INDICATION
     Route: 065
  4. PHENOBARBITAL TAB [Suspect]
     Indication: CONVULSION
     Route: 048
  5. NASONEX [Suspect]
     Indication: HYPERSENSITIVITY
     Route: 045
  6. BUTORPHANOL TARTRATE [Suspect]
     Indication: PRODUCT USED FOR UNKNOWN INDICATION
     Route: 065
  7. VITAMIN (PRENATAL) [Concomitant]
  8. PREVACID [Suspect]
     Indication: DYSPEPSIA
     Route: 048
  9. LORATADINE [Suspect]
     Indication: MULTIPLE ALLERGIES
     Route: 048
  10. ACETAMINOPHEN [Suspect]
     Indication: PAIN
     Route: 048
  11. PROMETHAZINE HCL [Suspect]
     Indication: PRODUCT USED FOR UNKNOWN INDICATION
     Route: 065
  12. ACETAMINOPHEN [Suspect]
     Route: 048
  13. FERROUS GLUCONATE [Concomitant]
     Indication: ANAEMIA

REACTIONS (3)
  - DEPRESSION [None]
  - MATERNAL EXPOSURE DURING PREGNANCY [None]
  - ANXIETY [None]
